FAERS Safety Report 8287307-5 (Version None)
Quarter: 2012Q2

REPORT INFORMATION
  Report Type: 
  Country: None (occurrence: None)
  Receive Date: 20120416
  Receipt Date: 20120416
  Transmission Date: 20120825
  Serious: No
  Sender: FDA-Public Use
  Company Number: None

PATIENT
  Sex: Female
  Weight: 92.532 kg

DRUGS (2)
  1. CYCLOPHOSPHAMIDE [Suspect]
     Indication: BREAST CANCER
     Dosage: INJ 1300 MG
     Route: 041
     Dates: start: 20110920, end: 20111122
  2. DOCETAXEL [Concomitant]
     Indication: BREAST CANCER
     Dosage: 160 MG
     Route: 041
     Dates: start: 20110920, end: 20111122

REACTIONS (6)
  - BLOOD COUNT ABNORMAL [None]
  - ANAEMIA [None]
  - HYPOAESTHESIA [None]
  - PARAESTHESIA [None]
  - NAIL DISCOLOURATION [None]
  - SENSORY LOSS [None]
